FAERS Safety Report 14166025 (Version 2)
Quarter: 2017Q4

REPORT INFORMATION
  Report Type: Report from Study
  Country: JP (occurrence: JP)
  Receive Date: 20171107
  Receipt Date: 20171208
  Transmission Date: 20180321
  Serious: Yes (Hospitalization)
  Sender: FDA-Public Use
  Company Number: JP-MYLANLABS-2013S1024256

PATIENT
  Age: 17 Year
  Sex: Male
  Weight: 39 kg

DRUGS (51)
  1. URALYT [Concomitant]
     Active Substance: POTASSIUM CITRATE\TRISODIUM CITRATE DIHYDRATE
     Indication: ELECTROLYTE IMBALANCE
  2. CALCIUM CARBONATE MYLAN [Concomitant]
     Active Substance: CALCIUM CARBONATE
     Dosage: 500 MG,BID
     Route: 048
     Dates: start: 20140225, end: 20140226
  3. MEDROL [Concomitant]
     Active Substance: METHYLPREDNISOLONE
     Dosage: 20 MG,QD
     Route: 048
     Dates: start: 20140203
  4. CELLCEPT [Concomitant]
     Active Substance: MYCOPHENOLATE MOFETIL\MYCOPHENOLATE MOFETIL HYDROCHLORIDE
     Dosage: 1000 MG,QD
     Route: 048
     Dates: start: 20140312, end: 20140408
  5. CELLCEPT [Concomitant]
     Active Substance: MYCOPHENOLATE MOFETIL\MYCOPHENOLATE MOFETIL HYDROCHLORIDE
     Dosage: 375 MG,BID
     Route: 048
     Dates: start: 20140409
  6. RINDERON #1 [Concomitant]
     Indication: PRODUCT USED FOR UNKNOWN INDICATION
     Dosage: 4 MG,UNK
     Route: 041
     Dates: start: 20140206, end: 20140206
  7. SOLDEM [Concomitant]
     Active Substance: DEXTROSE\POTASSIUM CHLORIDE\SODIUM CHLORIDE\SODIUM LACTATE
     Indication: PRODUCT USED FOR UNKNOWN INDICATION
     Dosage: 200 ML,UNK
     Route: 041
     Dates: start: 20140206, end: 20140206
  8. URALYT [Concomitant]
     Active Substance: POTASSIUM CITRATE\TRISODIUM CITRATE DIHYDRATE
     Dosage: 2 G, TID
     Route: 048
     Dates: start: 20110817, end: 20140211
  9. SLOW-K [Concomitant]
     Active Substance: POTASSIUM CHLORIDE
     Dosage: 1200 MG,BID
     Route: 048
     Dates: start: 20131022
  10. ALFA D [Concomitant]
     Indication: VITAMIN D DECREASED
     Dosage: .5 ?G,QD
     Route: 048
     Dates: start: 20130922, end: 20140212
  11. CALCIUM CARBONATE MYLAN [Concomitant]
     Active Substance: CALCIUM CARBONATE
     Dosage: 500 MG,QD
     Route: 048
     Dates: start: 20131022, end: 20140212
  12. MIRCERA [Concomitant]
     Active Substance: METHOXY POLYETHYLENE GLYCOL-EPOETIN BETA
     Dosage: 50 ?G,MONTHLY
     Route: 058
     Dates: start: 20131021, end: 20140127
  13. MIRCERA [Concomitant]
     Active Substance: METHOXY POLYETHYLENE GLYCOL-EPOETIN BETA
     Indication: ANAEMIA
  14. MEDROL [Concomitant]
     Active Substance: METHYLPREDNISOLONE
     Indication: PROPHYLAXIS AGAINST TRANSPLANT REJECTION
  15. PRIMPERAN [Concomitant]
     Active Substance: METOCLOPRAMIDE HYDROCHLORIDE
     Indication: PRODUCT USED FOR UNKNOWN INDICATION
     Dosage: 10 MG,UNK
     Route: 041
     Dates: start: 20140206, end: 20140206
  16. RITUXAN [Concomitant]
     Active Substance: RITUXIMAB
     Indication: PRODUCT USED FOR UNKNOWN INDICATION
     Dosage: 200 MG,UNK
     Route: 041
     Dates: start: 20140206, end: 20140206
  17. MERCAPTAMINE MYLAN [Suspect]
     Active Substance: CYSTEAMINE
     Dosage: 450 MG, AFTER BREAKFAST AND AFTER LUNCH; 600MG, AFTER DINNER AND BEFORE BEDTIME
     Route: 065
     Dates: start: 20170414
  18. SLOW-K [Concomitant]
     Active Substance: POTASSIUM CHLORIDE
     Indication: ELECTROLYTE IMBALANCE
  19. MIRCERA [Concomitant]
     Active Substance: METHOXY POLYETHYLENE GLYCOL-EPOETIN BETA
     Dosage: 100 ?G,TOTAL
     Route: 058
     Dates: start: 20140208, end: 20140208
  20. GRACEPTOR [Concomitant]
     Active Substance: TACROLIMUS
     Dosage: 6 MG,QD
     Route: 048
     Dates: start: 20140205, end: 20140221
  21. GRACEPTOR [Concomitant]
     Active Substance: TACROLIMUS
     Dosage: 6 MG,QD
     Route: 048
     Dates: start: 20140703
  22. MEDROL [Concomitant]
     Active Substance: METHYLPREDNISOLONE
     Dosage: 4 MG,QD
     Route: 048
     Dates: start: 20140307
  23. FORSENID /00571901/ [Concomitant]
     Indication: PRODUCT USED FOR UNKNOWN INDICATION
     Dosage: 24 MG,QD
     Route: 048
     Dates: start: 20140211, end: 20140212
  24. MAGCOROL P [Concomitant]
     Active Substance: MAGNESIUM CITRATE
     Indication: PRODUCT USED FOR UNKNOWN INDICATION
     Dosage: 50 G,QD
     Route: 048
     Dates: start: 20140212, end: 20140212
  25. SODIUM BICARBONATE. [Concomitant]
     Active Substance: SODIUM BICARBONATE
     Indication: ACIDOSIS
     Dosage: 1 G,TID
     Route: 048
     Dates: start: 20131022, end: 20140212
  26. CALCIUM CARBONATE MYLAN [Concomitant]
     Active Substance: CALCIUM CARBONATE
     Dosage: 500 MG,TID
     Route: 048
     Dates: start: 20140215, end: 20140224
  27. GRACEPTOR [Concomitant]
     Active Substance: TACROLIMUS
     Dosage: 7 MG,QD
     Route: 048
     Dates: start: 20140222, end: 20140224
  28. GRACEPTOR [Concomitant]
     Active Substance: TACROLIMUS
     Dosage: 8 MG,QD
     Route: 048
     Dates: start: 20140225, end: 20140702
  29. CELLCEPT [Concomitant]
     Active Substance: MYCOPHENOLATE MOFETIL\MYCOPHENOLATE MOFETIL HYDROCHLORIDE
     Dosage: 1000 MG,BID
     Route: 048
     Dates: start: 20140213, end: 20140213
  30. GRACEPTOR [Concomitant]
     Active Substance: TACROLIMUS
     Indication: PROPHYLAXIS AGAINST TRANSPLANT REJECTION
  31. MEDROL [Concomitant]
     Active Substance: METHYLPREDNISOLONE
     Dosage: 12 MG,QD
     Route: 048
     Dates: start: 20140225, end: 20140227
  32. MEDROL [Concomitant]
     Active Substance: METHYLPREDNISOLONE
     Dosage: 16 MG,QD
     Route: 048
     Dates: start: 20140222, end: 20140224
  33. MEDROL [Concomitant]
     Active Substance: METHYLPREDNISOLONE
     Dosage: 20 MG,QD
     Route: 048
     Dates: start: 20140219, end: 20140221
  34. LONASEN [Concomitant]
     Active Substance: BLONANSERIN
     Indication: PRODUCT USED FOR UNKNOWN INDICATION
     Dosage: 4 MG,QD
     Route: 048
     Dates: start: 20140106, end: 20140204
  35. CALCIUM CARBONATE MYLAN [Concomitant]
     Active Substance: CALCIUM CARBONATE
     Dosage: 500 MG,BID
     Route: 048
     Dates: start: 20140227, end: 20140228
  36. MEDROL [Concomitant]
     Active Substance: METHYLPREDNISOLONE
     Dosage: 32 MG,QD
     Route: 048
     Dates: start: 20140217, end: 20140218
  37. CELLCEPT [Concomitant]
     Active Substance: MYCOPHENOLATE MOFETIL\MYCOPHENOLATE MOFETIL HYDROCHLORIDE
     Dosage: 2000 MG,QD
     Route: 048
     Dates: start: 20140214, end: 20140228
  38. PARIET [Concomitant]
     Active Substance: RABEPRAZOLE SODIUM
     Indication: PROPHYLAXIS AGAINST GASTROINTESTINAL ULCER
     Dosage: 10 MG,QD
     Route: 048
     Dates: start: 20140203, end: 20140228
  39. BAKTAR [Concomitant]
     Active Substance: SULFAMETHOXAZOLE\TRIMETHOPRIM
     Indication: PRODUCT USED FOR UNKNOWN INDICATION
     Dosage: 1 DF,QD
     Route: 048
     Dates: start: 20140217
  40. MPR-1020 [Concomitant]
     Indication: CYSTINOSIS
     Dosage: UNK
     Dates: start: 20120809
  41. MERCAPTAMINE MYLAN [Suspect]
     Active Substance: CYSTEAMINE
     Indication: CYSTINOSIS
     Dosage: 600 MG, QID
     Route: 048
     Dates: start: 20120919
  42. MERCAPTAMINE MYLAN [Suspect]
     Active Substance: CYSTEAMINE
     Dosage: 600 MG, QID
     Route: 065
     Dates: start: 20161008, end: 20170413
  43. SLOW-K [Concomitant]
     Active Substance: POTASSIUM CHLORIDE
     Dosage: 1200 MG, QD
     Route: 048
     Dates: start: 20140320
  44. MEDROL [Concomitant]
     Active Substance: METHYLPREDNISOLONE
     Dosage: 8 MG,QD
     Route: 048
     Dates: start: 20140228, end: 20140306
  45. CELLCEPT [Concomitant]
     Active Substance: MYCOPHENOLATE MOFETIL\MYCOPHENOLATE MOFETIL HYDROCHLORIDE
     Dosage: 1000 MG,QD
     Route: 048
     Dates: start: 20140203, end: 20140212
  46. URALYT [Concomitant]
     Active Substance: POTASSIUM CITRATE\TRISODIUM CITRATE DIHYDRATE
     Dosage: 2 G, TID
     Route: 048
     Dates: start: 20140212, end: 20140212
  47. SLOW-K [Concomitant]
     Active Substance: POTASSIUM CHLORIDE
     Dosage: 1200 MG, BID
     Route: 048
     Dates: start: 20140203, end: 20140319
  48. GRACEPTOR [Concomitant]
     Active Substance: TACROLIMUS
     Dosage: 4 MG,QD
     Route: 048
     Dates: start: 20140203, end: 20140204
  49. CELLCEPT [Concomitant]
     Active Substance: MYCOPHENOLATE MOFETIL\MYCOPHENOLATE MOFETIL HYDROCHLORIDE
     Dosage: 1500 MG,QD
     Route: 048
     Dates: start: 20140301, end: 20140311
  50. CELLCEPT [Concomitant]
     Active Substance: MYCOPHENOLATE MOFETIL\MYCOPHENOLATE MOFETIL HYDROCHLORIDE
     Indication: PROPHYLAXIS AGAINST TRANSPLANT REJECTION
  51. ACUATIM [Concomitant]
     Active Substance: NADIFLOXACIN
     Indication: SKIN INFECTION
     Dosage: UNK
     Route: 061
     Dates: start: 20140708

REACTIONS (6)
  - Chronic kidney disease [Recovered/Resolved]
  - Abdominal distension [Recovering/Resolving]
  - Pruritus [Recovered/Resolved]
  - Blood creatinine increased [Recovering/Resolving]
  - Feeling abnormal [Recovered/Resolved]
  - Rash [Recovered/Resolved]

NARRATIVE: CASE EVENT DATE: 20140106
